FAERS Safety Report 15440082 (Version 1)
Quarter: 2018Q3

REPORT INFORMATION
  Report Type: Spontaneous
  Country: IE (occurrence: IE)
  Receive Date: 20180928
  Receipt Date: 20180928
  Transmission Date: 20181010
  Serious: Yes (Other)
  Sender: FDA-Public Use
  Company Number: IE-MYLANLABS-2016M1033021

PATIENT
  Age: 55 Year
  Sex: Male
  Weight: 65 kg

DRUGS (21)
  1. CLOZARIL [Suspect]
     Active Substance: CLOZAPINE
     Indication: SCHIZOPHRENIA
     Dosage: UNK
     Route: 048
     Dates: start: 20010701
  2. CLOZARIL [Suspect]
     Active Substance: CLOZAPINE
     Dosage: 450 MG, PM
     Route: 048
  3. CARNITINE [Concomitant]
     Active Substance: CARNITINE
     Indication: AMMONIA INCREASED
     Dosage: 1 MG, QD
     Route: 048
  4. FLUOXETINE [Concomitant]
     Active Substance: FLUOXETINE HYDROCHLORIDE
     Indication: DEPRESSION
     Dosage: 40 MG, QD
     Route: 048
     Dates: start: 201210
  5. CLOZARIL [Suspect]
     Active Substance: CLOZAPINE
     Dosage: 250 MG, AM
     Route: 048
     Dates: start: 20130724
  6. CLOZARIL [Suspect]
     Active Substance: CLOZAPINE
     Dosage: 400 MG, PM
     Route: 048
  7. BETNOVATE [Concomitant]
     Active Substance: BETAMETHASONE
     Indication: PRODUCT USED FOR UNKNOWN INDICATION
     Dosage: UNK
     Route: 061
  8. EPILIM [Concomitant]
     Active Substance: VALPROATE SODIUM
     Indication: MOOD ALTERED
     Dosage: 500 MG, QD
     Route: 048
  9. CLOZARIL [Suspect]
     Active Substance: CLOZAPINE
     Dosage: 800 MG, QD
     Route: 048
  10. LACTULOSE. [Concomitant]
     Active Substance: LACTULOSE
     Dosage: 10 MG, QD
     Route: 048
  11. SODIUM VALPROATE [Concomitant]
     Active Substance: VALPROATE SODIUM
     Indication: SEIZURE
     Dosage: 500 MG, QD
     Route: 048
  12. SODIUM VALPROATE [Concomitant]
     Active Substance: VALPROATE SODIUM
     Indication: EPILEPSY
  13. LAMOTRIGINE. [Concomitant]
     Active Substance: LAMOTRIGINE
     Dosage: 50 MG, QD
     Route: 048
  14. HALOPERIDOL. [Concomitant]
     Active Substance: HALOPERIDOL
     Indication: DEPRESSION
     Dosage: 10 MG, QD
     Route: 048
  15. ABILIFY [Concomitant]
     Active Substance: ARIPIPRAZOLE
     Indication: PRODUCT USED FOR UNKNOWN INDICATION
     Dosage: 30 MG, QD
     Route: 048
  16. KWELLS [Concomitant]
     Active Substance: SCOPOLAMINE HYDROBROMIDE
     Indication: DROOLING
     Dosage: UNK, QD
     Route: 048
  17. ARIPIPRAZOLE. [Concomitant]
     Active Substance: ARIPIPRAZOLE
     Indication: PSYCHOTIC DISORDER
     Dosage: 30 MG, QD
     Route: 048
  18. LACTULOSE. [Concomitant]
     Active Substance: LACTULOSE
     Indication: CONSTIPATION
     Dosage: 20 MG, UNK
     Route: 048
     Dates: start: 201210
  19. LAMOTRIGINE. [Concomitant]
     Active Substance: LAMOTRIGINE
     Indication: MOOD ALTERED
     Dosage: 75 MG, QD
     Route: 048
  20. CLOZARIL [Suspect]
     Active Substance: CLOZAPINE
     Dosage: 50 MG, AM
     Route: 048
  21. FERROUS SULFATE. [Concomitant]
     Active Substance: FERROUS SULFATE
     Indication: BLOOD IRON ABNORMAL
     Dosage: UNK
     Route: 048
     Dates: start: 201210

REACTIONS (9)
  - Condition aggravated [Recovering/Resolving]
  - White blood cell count increased [Recovered/Resolved]
  - Skin ulcer [Recovering/Resolving]
  - Differential white blood cell count abnormal [Recovered/Resolved]
  - Monocyte count increased [Unknown]
  - Basophil count increased [Unknown]
  - Neutrophil count increased [Recovered/Resolved]
  - Epilepsy [Not Recovered/Not Resolved]
  - Eosinophilia [Recovering/Resolving]

NARRATIVE: CASE EVENT DATE: 2012
